FAERS Safety Report 4640157-0 (Version None)
Quarter: 2005Q2

REPORT INFORMATION
  Report Type: 
  Country: None (occurrence: None)
  Receive Date: 20050415
  Receipt Date: 20050415
  Transmission Date: 20051028
  Serious: No
  Sender: FDA-Public Use
  Company Number: None

PATIENT
  Sex: Female
  Weight: 77.1 kg

DRUGS (5)
  1. DOCETAXEL [Suspect]
     Dosage: HIGH DENSE EVERY TWO WEEKS
  2. CISPLATIN [Suspect]
     Dosage: HIGH DENSE EVERY TWO WEEKS
  3. PEGFILGRASTIM [Suspect]
  4. DARBOPOETIN ALFA [Suspect]
  5. DEXAMETHASONE [Concomitant]

REACTIONS (3)
  - CHEST PAIN [None]
  - DYSPNOEA [None]
  - INFUSION RELATED REACTION [None]
